FAERS Safety Report 5060478-X (Version None)
Quarter: 2006Q3

REPORT INFORMATION
  Report Type: 
  Country: None (occurrence: None)
  Receive Date: 20060720
  Receipt Date: 20060705
  Transmission Date: 20061208
  Serious: Yes (Hospitalization)
  Sender: FDA-Public Use
  Company Number: 227310

PATIENT
  Age: 51 Year

DRUGS (3)
  1. AVASTIN [Suspect]
     Indication: SMALL CELL LUNG CANCER STAGE UNSPECIFIED
     Dosage: 15 MG/KG, Q21D, INTRAVENOUS
     Route: 042
     Dates: start: 20060411
  2. CISPLATIN [Suspect]
     Indication: SMALL CELL LUNG CANCER STAGE UNSPECIFIED
     Dosage: 60 MG/M2, Q21D, INTRAVENOUS
     Route: 042
     Dates: start: 20060411
  3. ETOPOSIDE [Suspect]
     Indication: SMALL CELL LUNG CANCER STAGE UNSPECIFIED
     Dosage: 120 MG/M2, 3 PER 21D, INTRAVENOUS
     Route: 042
     Dates: start: 20060411

REACTIONS (5)
  - BRONCHIAL FISTULA [None]
  - DEHYDRATION [None]
  - NAUSEA [None]
  - RENAL IMPAIRMENT [None]
  - VOMITING [None]
